FAERS Safety Report 9258161 (Version 1)
Quarter: 2013Q2

REPORT INFORMATION
  Report Type: Spontaneous
  Country: AT (occurrence: AT)
  Receive Date: 20130426
  Receipt Date: 20130426
  Transmission Date: 20140414
  Serious: Yes (Other)
  Sender: FDA-Public Use
  Company Number: AT-ROCHE-1217578

PATIENT
  Sex: Female
  Weight: 65 kg

DRUGS (1)
  1. ACTILYSE [Suspect]
     Indication: CEREBROVASCULAR ACCIDENT
     Route: 042
     Dates: start: 20130406, end: 20130406

REACTIONS (6)
  - Blood pressure decreased [Recovered/Resolved]
  - Cold sweat [Recovered/Resolved]
  - Visual acuity reduced [Recovered/Resolved]
  - Generalised erythema [Recovered/Resolved]
  - Paraesthesia [Recovered/Resolved]
  - Disturbance in attention [Recovered/Resolved]
